FAERS Safety Report 4421621-6 (Version None)
Quarter: 2004Q3

REPORT INFORMATION
  Report Type: 
  Country: None (occurrence: None)
  Receive Date: 20040804
  Receipt Date: 20040727
  Transmission Date: 20050211
  Serious: Yes (Death, Hospitalization)
  Sender: FDA-Public Use
  Company Number: USA-2004-0015566

PATIENT
  Age: 83 Year
  Sex: Female
  Weight: 53.5 kg

DRUGS (10)
  1. OXYCONTIN [Suspect]
     Indication: PAIN
     Dosage: 10 MG, Q8H
     Dates: start: 20040101
  2. DURAGESIC [Concomitant]
  3. ACETAMINOPHEN AND OXYCODONE HCL [Concomitant]
  4. PEPCID [Concomitant]
  5. SYNTHROID [Concomitant]
  6. ATENOLOL [Concomitant]
  7. NEURONTIN [Concomitant]
  8. EVISTA [Concomitant]
  9. METOCLOPRAMIDE [Concomitant]
  10. VALDECOXIB [Concomitant]

REACTIONS (3)
  - CARCINOMA [None]
  - MALIGNANT NEOPLASM PROGRESSION [None]
  - PAIN [None]
